FAERS Safety Report 17358896 (Version 1)
Quarter: 2020Q1

REPORT INFORMATION
  Report Type: Report from Study
  Country: US (occurrence: US)
  Receive Date: 20200202
  Receipt Date: 20200202
  Transmission Date: 20200409
  Serious: Yes (Death, Hospitalization, Other)
  Sender: FDA-Public Use
  Company Number: PHHY2019US031363

PATIENT
  Age: 71 Year
  Sex: Female
  Weight: 76.6 kg

DRUGS (4)
  1. GUAIFENESIN. [Concomitant]
     Active Substance: GUAIFENESIN
     Indication: PRODUCT USED FOR UNKNOWN INDICATION
     Route: 065
  2. CYCLOPHOSPHAMIDE. [Concomitant]
     Active Substance: CYCLOPHOSPHAMIDE
     Indication: CHEMOTHERAPY
     Dosage: 470 MG, UNK
     Route: 065
     Dates: start: 20180831, end: 20180902
  3. KYMRIAH [Suspect]
     Active Substance: TISAGENLECLEUCEL
     Indication: DIFFUSE LARGE B-CELL LYMPHOMA
     Dosage: 3.5 X 10^6 POSITIVE VIABLE T CELLS/KG BODY WEIGHT
     Route: 042
     Dates: start: 20180905, end: 20180905
  4. FLUDARABINE [Concomitant]
     Active Substance: FLUDARABINE PHOSPHATE
     Indication: CHEMOTHERAPY
     Dosage: 47 MG, UNK
     Route: 065
     Dates: start: 20180831, end: 20180902

REACTIONS (28)
  - Troponin T increased [Recovered/Resolved]
  - Dyspnoea exertional [Unknown]
  - N-terminal prohormone brain natriuretic peptide increased [Unknown]
  - Headache [Unknown]
  - Staphylococcus test positive [Unknown]
  - Death [Fatal]
  - Infection [Recovering/Resolving]
  - Respiratory failure [Recovering/Resolving]
  - Hypoxia [Unknown]
  - Encephalopathy [Unknown]
  - Productive cough [Unknown]
  - Diarrhoea [Not Recovered/Not Resolved]
  - Asthenia [Unknown]
  - Fatigue [Recovering/Resolving]
  - Pollakiuria [Unknown]
  - Micturition urgency [Unknown]
  - Cystitis [Recovered/Resolved]
  - Dyspnoea [Recovering/Resolving]
  - Pneumonia [Recovering/Resolving]
  - Respiratory tract congestion [Unknown]
  - Hypothyroidism [Unknown]
  - Streptococcus test positive [Unknown]
  - Bronchiolitis [Recovering/Resolving]
  - Confusional state [Recovered/Resolved]
  - Cardiac failure [Recovered/Resolved with Sequelae]
  - Hypokalaemia [Recovering/Resolving]
  - Wheezing [Unknown]
  - Legionella test positive [Unknown]

NARRATIVE: CASE EVENT DATE: 20190205
